FAERS Safety Report 9669598 (Version 1)
Quarter: 2013Q4

REPORT INFORMATION
  Report Type: Spontaneous
  Country: US (occurrence: None)
  Receive Date: 20131104
  Receipt Date: 20131104
  Transmission Date: 20140711
  Serious: Yes (Disabling)
  Sender: FDA-Public Use
  Company Number: None

PATIENT
  Age: 39 Year
  Sex: Female
  Weight: 56.7 kg

DRUGS (2)
  1. MUCINEX D [Suspect]
     Indication: PHARYNGITIS
     Dosage: 1 PILL
     Route: 048
     Dates: start: 20131101, end: 20131102
  2. MUCINEX D [Suspect]
     Indication: NASAL CONGESTION
     Dosage: 1 PILL
     Route: 048
     Dates: start: 20131101, end: 20131102

REACTIONS (3)
  - Arrhythmia [None]
  - Dizziness [None]
  - Fatigue [None]
